FAERS Safety Report 21395774 (Version 1)
Quarter: 2022Q3

REPORT INFORMATION
  Report Type: Spontaneous
  Country: None (occurrence: US)
  Receive Date: 20220930
  Receipt Date: 20220930
  Transmission Date: 20221027
  Serious: Yes (Other)
  Sender: FDA-Public Use
  Company Number: US-BIOLOGICAL E. LTD-2133348

PATIENT
  Sex: Female

DRUGS (1)
  1. FOSAPREPITANT [Suspect]
     Active Substance: FOSAPREPITANT
     Indication: Product used for unknown indication
     Route: 065
     Dates: start: 20211215

REACTIONS (1)
  - Anaphylactic reaction [Unknown]
